FAERS Safety Report 7752662-9 (Version None)
Quarter: 2011Q3

REPORT INFORMATION
  Report Type: 
  Country: None (occurrence: None)
  Receive Date: 20110915
  Receipt Date: 20110909
  Transmission Date: 20111222
  Serious: Yes (Other)
  Sender: FDA-Public Use
  Company Number: CO-ROCHE-770767

PATIENT
  Sex: Male

DRUGS (1)
  1. ACTEMRA [Suspect]
     Indication: RHEUMATOID ARTHRITIS
     Dosage: FREQUENCY: MONTHLY
     Route: 042
     Dates: start: 20100923

REACTIONS (2)
  - SQUAMOUS CELL CARCINOMA [None]
  - LYMPHADENOPATHY [None]
